FAERS Safety Report 15844697 (Version 1)
Quarter: 2019Q1

REPORT INFORMATION
  Report Type: Spontaneous
  Country: FR (occurrence: FR)
  Receive Date: 20190118
  Receipt Date: 20190118
  Transmission Date: 20190417
  Serious: Yes (Hospitalization)
  Sender: FDA-Public Use
  Company Number: FR-INDIVIOR LIMITED-INDV-117003-2019

PATIENT
  Age: 48 Year
  Sex: Male
  Weight: 60 kg

DRUGS (1)
  1. SUBUTEX [Suspect]
     Active Substance: BUPRENORPHINE HYDROCHLORIDE
     Indication: PRODUCT USED FOR UNKNOWN INDICATION
     Dosage: 4MG PER DAY
     Route: 042
     Dates: start: 2003, end: 20181113

REACTIONS (3)
  - Intentional product use issue [Recovered/Resolved]
  - Septic embolus [Recovering/Resolving]
  - Endocarditis staphylococcal [Recovering/Resolving]

NARRATIVE: CASE EVENT DATE: 2003
